FAERS Safety Report 10450454 (Version 1)
Quarter: 2014Q3

REPORT INFORMATION
  Report Type: Spontaneous
  Country: US (occurrence: None)
  Receive Date: 20140911
  Receipt Date: 20140911
  Transmission Date: 20150326
  Serious: No
  Sender: FDA-Public Use
  Company Number: None

PATIENT
  Age: 62 Year
  Sex: Male
  Weight: 65.7 kg

DRUGS (1)
  1. PANTOPRAZOLE [Suspect]
     Active Substance: PANTOPRAZOLE SODIUM
     Indication: GASTROOESOPHAGEAL REFLUX DISEASE
     Route: 042
     Dates: start: 20140708, end: 20140708

REACTIONS (15)
  - Angioedema [None]
  - Dyspnoea [None]
  - Pneumonia [None]
  - Hypothermia [None]
  - Agitation [None]
  - Delirium [None]
  - Catheter site haemorrhage [None]
  - Acute respiratory failure [None]
  - Diet noncompliance [None]
  - Thrombocytopenia [None]
  - Wheezing [None]
  - Hyperkalaemia [None]
  - Hypotension [None]
  - Vocal cord disorder [None]
  - Enterobacter pneumonia [None]

NARRATIVE: CASE EVENT DATE: 20140709
